FAERS Safety Report 4866333-X (Version None)
Quarter: 2005Q4

REPORT INFORMATION
  Report Type: 
  Country: None (occurrence: None)
  Receive Date: 20051227
  Receipt Date: 20051213
  Transmission Date: 20060501
  Serious: Yes (Life-Threatening, Other)
  Sender: FDA-Public Use
  Company Number: US-JNJFOC-20051203635

PATIENT
  Sex: Female

DRUGS (1)
  1. REOPRO [Suspect]
     Route: 042

REACTIONS (3)
  - CEREBROVASCULAR ACCIDENT [None]
  - RETROPERITONEAL HAEMORRHAGE [None]
  - THROMBOCYTOPENIA [None]
